FAERS Safety Report 13889247 (Version 2)
Quarter: 2018Q1

REPORT INFORMATION
  Report Type: Report from Study
  Country: None (occurrence: BR)
  Receive Date: 20170821
  Receipt Date: 20180123
  Transmission Date: 20180508
  Serious: Yes (Hospitalization, Other)
  Sender: FDA-Public Use
  Company Number: BR-ABBVIE-17K-020-2074461-00

PATIENT
  Age: 60 Year
  Sex: Female
  Weight: 73 kg

DRUGS (1)
  1. HUMIRA [Suspect]
     Active Substance: ADALIMUMAB
     Indication: RHEUMATOID ARTHRITIS
     Route: 058
     Dates: start: 20100101

REACTIONS (4)
  - Emphysema [Recovered/Resolved]
  - Syncope [Recovered/Resolved]
  - Dyspnoea [Recovered/Resolved]
  - Dyspnoea [Recovered/Resolved]

NARRATIVE: CASE EVENT DATE: 2015
